FAERS Safety Report 4310544-9 (Version None)
Quarter: 2004Q1

REPORT INFORMATION
  Report Type: 
  Country: None (occurrence: None)
  Receive Date: 20040303
  Receipt Date: 20031212
  Transmission Date: 20041129
  Serious: Yes (Life-Threatening, Hospitalization)
  Sender: FDA-Public Use
  Company Number: FR-GLAXOSMITHKLINE-B0317944A

PATIENT
  Age: 57 Year
  Sex: Female

DRUGS (6)
  1. AMOXICILLIN AND CLAVULANATE POTASSIUM [Suspect]
     Indication: NASOPHARYNGITIS
     Dosage: 3G PER DAY
     Route: 048
     Dates: start: 20031024, end: 20031103
  2. VIDEX [Suspect]
     Indication: HIV INFECTION
     Dosage: 40MG PER DAY
     Route: 048
     Dates: start: 20030929, end: 20031103
  3. VIRAMUNE [Suspect]
     Indication: HIV INFECTION
     Route: 048
     Dates: start: 20030929, end: 20031103
  4. VIREAD [Suspect]
     Indication: HIV INFECTION
     Dosage: 300MG PER DAY
     Route: 048
     Dates: start: 20030929, end: 20031103
  5. METFORMIN HYDROCHLORIDE [Concomitant]
  6. PAROXETINE HCL [Concomitant]

REACTIONS (7)
  - LUNG INFECTION PSEUDOMONAL [None]
  - PNEUMONIA [None]
  - PYREXIA [None]
  - RASH [None]
  - STAPHYLOCOCCAL SEPSIS [None]
  - STEVENS-JOHNSON SYNDROME [None]
  - TOXIC EPIDERMAL NECROLYSIS [None]
